FAERS Safety Report 20390429 (Version 1)
Quarter: 2022Q1

REPORT INFORMATION
  Report Type: Spontaneous
  Country: US (occurrence: None)
  Receive Date: 20220127
  Receipt Date: 20220127
  Transmission Date: 20220423
  Serious: No
  Sender: FDA-Public Use
  Company Number: None

PATIENT
  Sex: Female

DRUGS (2)
  1. BOTOX [Suspect]
     Active Substance: ONABOTULINUMTOXINA
     Indication: Migraine
     Dosage: OTHER FREQUENCY : EVERY 12 WEEKS;?
     Route: 030
     Dates: start: 20200109
  2. UBRELVY TAB [Concomitant]

REACTIONS (5)
  - Spinal operation [None]
  - Arthralgia [None]
  - Haematemesis [None]
  - Blood pressure increased [None]
  - Swelling face [None]
